FAERS Safety Report 15826946 (Version 2)
Quarter: 2019Q1

REPORT INFORMATION
  Report Type: Spontaneous
  Country: US (occurrence: US)
  Receive Date: 20190115
  Receipt Date: 20190121
  Transmission Date: 20190417
  Serious: Yes (Life-Threatening, Other)
  Sender: FDA-Public Use
  Company Number: US-BAYER-2019-010350

PATIENT
  Age: 76 Year
  Sex: Female

DRUGS (5)
  1. LIDOCAINE. [Suspect]
     Active Substance: LIDOCAINE
     Route: 061
  2. ENOXAPARIN [Concomitant]
     Active Substance: ENOXAPARIN
  3. CARVEDILOL. [Concomitant]
     Active Substance: CARVEDILOL
  4. FUROSEMIDE. [Concomitant]
     Active Substance: FUROSEMIDE
     Indication: CARDIAC FAILURE
  5. WARFARIN [Concomitant]
     Active Substance: WARFARIN

REACTIONS (6)
  - Seizure [None]
  - Toxicity to various agents [Recovered/Resolved]
  - Respiratory failure [None]
  - Cardiac arrest [Recovered/Resolved]
  - Product use in unapproved indication [None]
  - Right ventricular dysfunction [None]
